FAERS Safety Report 24673152 (Version 1)
Quarter: 2024Q4

REPORT INFORMATION
  Report Type: Spontaneous
  Country: US (occurrence: US)
  Receive Date: 20241128
  Receipt Date: 20241128
  Transmission Date: 20250114
  Serious: Yes (Other)
  Sender: IBSA INSTITUT BIOCHIMIQUE
  Company Number: US-IBSA PHARMA INC.-2024IBS000066

PATIENT
  Sex: Female

DRUGS (2)
  1. TIROSINT [Suspect]
     Active Substance: LEVOTHYROXINE SODIUM
     Indication: Hypothyroidism
     Dosage: 75 MICROGRAM, QD
     Route: 048
     Dates: start: 2019
  2. TIROSINT [Suspect]
     Active Substance: LEVOTHYROXINE SODIUM
     Dosage: 63 MICROGRAM, QD  (50MCG+13MCG)
     Route: 048

REACTIONS (6)
  - Hyperthyroidism [Unknown]
  - Decreased appetite [Unknown]
  - Blood test abnormal [Unknown]
  - Drug intolerance [Unknown]
  - Insomnia [Unknown]
  - Wrong technique in product usage process [Unknown]
